FAERS Safety Report 21191739 (Version 13)
Quarter: 2024Q1

REPORT INFORMATION
  Report Type: Report from Study
  Country: US (occurrence: US)
  Receive Date: 20220809
  Receipt Date: 20240120
  Transmission Date: 20240409
  Serious: Yes (Hospitalization)
  Sender: FDA-Public Use
  Company Number: US-NOVARTISTESTPH-NVSC2022US179774

PATIENT
  Age: 45 Year
  Sex: Male

DRUGS (4)
  1. KESIMPTA [Suspect]
     Active Substance: OFATUMUMAB
     Indication: Multiple sclerosis
     Dosage: UNK, QMO
     Route: 058
     Dates: start: 20220707
  2. KESIMPTA [Suspect]
     Active Substance: OFATUMUMAB
     Dosage: 20 MG, QMO
     Route: 058
     Dates: start: 20220715
  3. KESIMPTA [Suspect]
     Active Substance: OFATUMUMAB
     Dosage: 0.4 ML, UNKNOWN
     Route: 065
  4. KESIMPTA [Suspect]
     Active Substance: OFATUMUMAB
     Dosage: UNK
     Route: 065
     Dates: start: 2022

REACTIONS (10)
  - Wound haemorrhage [Unknown]
  - Medical device site infection [Recovering/Resolving]
  - Sepsis [Recovering/Resolving]
  - Muscle spasms [Unknown]
  - Pain in extremity [Recovered/Resolved]
  - Injury [Recovered/Resolved]
  - Blister [Recovered/Resolved]
  - Dyskinesia [Unknown]
  - Joint stiffness [Unknown]
  - Injection site scar [Unknown]

NARRATIVE: CASE EVENT DATE: 20220701
